FAERS Safety Report 8725431 (Version 3)
Quarter: 2013Q1

REPORT INFORMATION
  Report Type: Spontaneous
  Country: DK (occurrence: JP)
  Receive Date: 20120815
  Receipt Date: 20130102
  Transmission Date: 20140127
  Serious: Yes (Hospitalization)
  Sender: FDA-Public Use
  Company Number: JP-FRI-1000037747

PATIENT
  Age: 77 Year
  Sex: Female
  Weight: 46 kg

DRUGS (12)
  1. LEXAPRO [Suspect]
     Indication: DEPRESSION
     Dosage: 10 MG
     Route: 048
     Dates: start: 20120719, end: 20120727
  2. PAXIL [Suspect]
     Indication: DEPRESSION
     Dosage: 10 MG
     Route: 048
     Dates: start: 20120702, end: 20120711
  3. PAXIL [Suspect]
     Dosage: 20 MG
     Route: 048
     Dates: start: 20120712, end: 20120718
  4. PAXIL [Suspect]
     Indication: DEPRESSION
     Dosage: 10 MG
     Route: 048
     Dates: start: 20120719, end: 20120730
  5. TEGRETOL [Suspect]
     Indication: PARAESTHESIA
     Dosage: 200 MG
     Route: 048
     Dates: start: 20120713, end: 20120802
  6. CEPHADOL [Concomitant]
     Indication: DIZZINESS
     Dosage: 75 MG
     Route: 048
     Dates: start: 20120621, end: 20120802
  7. DEPAS [Concomitant]
     Indication: INSOMNIA
     Dosage: 0.5 MG
     Route: 048
     Dates: start: 20120420, end: 20120802
  8. BAYASPIRIN [Concomitant]
     Indication: CEREBRAL INFARCTION
     Dosage: 100 MG
     Route: 048
     Dates: start: 20120410, end: 20120802
  9. TAKEPRON [Concomitant]
     Indication: GASTROOESOPHAGEAL REFLUX DISEASE
     Dosage: 15 MG
     Route: 048
     Dates: start: 20120629, end: 20120802
  10. PANTOSIN [Concomitant]
     Indication: CONSTIPATION
     Dosage: 3 G
     Route: 048
     Dates: start: 20120507, end: 20120802
  11. MAGNESIUM OXIDE [Concomitant]
     Indication: CONSTIPATION
     Dosage: 1.5 G
     Route: 048
     Dates: start: 20120507, end: 20120802
  12. AFTACH [Concomitant]
     Indication: APHTHOUS STOMATITIS
     Dosage: 25 MCG
     Route: 050
     Dates: start: 20120719, end: 20120802

REACTIONS (3)
  - Cholestasis [Recovered/Resolved]
  - Drug eruption [Recovered/Resolved]
  - Blood glucose increased [Unknown]
